FAERS Safety Report 4981826-2 (Version None)
Quarter: 2006Q2

REPORT INFORMATION
  Report Type: 
  Country: None (occurrence: None)
  Receive Date: 20060421
  Receipt Date: 20060414
  Transmission Date: 20061013
  Serious: Yes (Hospitalization)
  Sender: FDA-Public Use
  Company Number: 200604015

PATIENT
  Age: 66 Year
  Sex: Female

DRUGS (3)
  1. RESTASIS [Suspect]
     Indication: DRY EYE
     Dosage: 2 DROP BID EYE
     Dates: start: 20040101
  2. NEXIUM [Concomitant]
  3. DYAZIDE [Concomitant]

REACTIONS (4)
  - FALL [None]
  - HYPOMAGNESAEMIA [None]
  - MUSCULAR WEAKNESS [None]
  - RIB FRACTURE [None]
